FAERS Safety Report 25572535 (Version 1)
Quarter: 2025Q3

REPORT INFORMATION
  Report Type: Spontaneous
  Country: US (occurrence: US)
  Receive Date: 20250717
  Receipt Date: 20250717
  Transmission Date: 20251020
  Serious: No
  Sender: MISSION PHARMACAL COMPANY
  Company Number: US-Mission Pharmacal Company-2180692

PATIENT
  Age: 39 Year
  Sex: Male

DRUGS (7)
  1. THIOLA EC [Suspect]
     Active Substance: TIOPRONIN
     Indication: Nephrolithiasis
     Dates: start: 20161105
  2. THIOLA EC [Suspect]
     Active Substance: TIOPRONIN
     Indication: Ureterolithiasis
  3. ALPHA LIPOIC ACID [Concomitant]
     Active Substance: .ALPHA.-LIPOIC ACID
  4. DICYCLOMINE [Concomitant]
     Active Substance: DICYCLOMINE HYDROCHLORIDE
  5. ALLEGRA [Concomitant]
     Active Substance: FEXOFENADINE HYDROCHLORIDE
  6. OMEPRAZOLE [Concomitant]
     Active Substance: OMEPRAZOLE
  7. LISINOPRIL [Concomitant]
     Active Substance: LISINOPRIL

REACTIONS (13)
  - Drug ineffective [Unknown]
  - Gastrointestinal disorder [Unknown]
  - Infection [Unknown]
  - Inflammation [Unknown]
  - Intraocular pressure test [Unknown]
  - Malaise [Unknown]
  - Fatigue [Unknown]
  - Pyrexia [Unknown]
  - Product dose omission issue [Unknown]
  - Orthostatic hypotension [Unknown]
  - Dizziness [Unknown]
  - Dermal cyst [Unknown]
  - Renal cyst [Unknown]
